FAERS Safety Report 20554725 (Version 3)
Quarter: 2023Q2

REPORT INFORMATION
  Report Type: Report from Study
  Country: IN (occurrence: IN)
  Receive Date: 20220304
  Receipt Date: 20230615
  Transmission Date: 20230722
  Serious: Yes (Death)
  Sender: FDA-Public Use
  Company Number: IN-NOVARTISPH-NVSC2022IN050367

PATIENT
  Age: 66 Year
  Sex: Female

DRUGS (1)
  1. RIBOCICLIB [Suspect]
     Active Substance: RIBOCICLIB
     Indication: Breast cancer metastatic
     Dosage: 600 MG, QD
     Route: 065

REACTIONS (10)
  - Death [Fatal]
  - Tenderness [Unknown]
  - Oedema [Unknown]
  - White blood cell count decreased [Unknown]
  - Paraesthesia [Unknown]
  - Axillary mass [Unknown]
  - Pain [Unknown]
  - Haemoglobin decreased [Unknown]
  - Back pain [Unknown]
  - Erythema [Unknown]

NARRATIVE: CASE EVENT DATE: 20220201
